FAERS Safety Report 11898194 (Version 2)
Quarter: 2016Q3

REPORT INFORMATION
  Report Type: Spontaneous
  Country: IT (occurrence: IT)
  Receive Date: 20160108
  Receipt Date: 20160909
  Transmission Date: 20161109
  Serious: Yes (Hospitalization)
  Sender: FDA-Public Use
  Company Number: IT-TEVA-623011ACC

PATIENT
  Age: 10 Year
  Sex: Female
  Weight: 22 kg

DRUGS (3)
  1. VINCRISTINE [Suspect]
     Active Substance: VINCRISTINE
     Indication: CHEMOTHERAPY
     Dosage: 1.32 MG WEEKLY
     Route: 042
  2. PANTOPRAZOLE [Suspect]
     Active Substance: PANTOPRAZOLE SODIUM
     Indication: LEUKAEMIA
     Dosage: 40 MILLIGRAM DAILY; 40 MG DAILY
     Route: 042
  3. POSACONAZOLE [Suspect]
     Active Substance: POSACONAZOLE
     Indication: LEUKAEMIA
     Dosage: 160 MILLIGRAM DAILY; 160 MG DAILY
     Route: 048

REACTIONS (2)
  - Seizure [Recovering/Resolving]
  - Hyponatraemia [Unknown]

NARRATIVE: CASE EVENT DATE: 20151219
